FAERS Safety Report 10011314 (Version 1)
Quarter: 2014Q1

REPORT INFORMATION
  Report Type: Spontaneous
  Country: US (occurrence: US)
  Receive Date: 20140314
  Receipt Date: 20140314
  Transmission Date: 20141002
  Serious: No
  Sender: FDA-Public Use
  Company Number: US-DRREDDYS-USA/USA/14/0037023

PATIENT
  Age: 22 Year
  Sex: Male

DRUGS (1)
  1. CETIRIZINE 10 MG [Suspect]
     Indication: PRODUCT USED FOR UNKNOWN INDICATION
     Route: 048
     Dates: start: 20140108

REACTIONS (2)
  - Extra dose administered [Unknown]
  - No adverse event [Unknown]
